FAERS Safety Report 15173067 (Version 1)
Quarter: 2018Q3

REPORT INFORMATION
  Report Type: Spontaneous
  Country: GB (occurrence: GB)
  Receive Date: 20180720
  Receipt Date: 20180720
  Transmission Date: 20181010
  Serious: Yes (Congenital Anomaly)
  Sender: FDA-Public Use
  Company Number: GB-MYLANLABS-2018M1053527

PATIENT
  Sex: Female
  Weight: 2.49 kg

DRUGS (1)
  1. ISOTRETINOIN. [Suspect]
     Active Substance: ISOTRETINOIN
     Indication: ACNE
     Route: 064

REACTIONS (9)
  - Foetal retinoid syndrome [Not Recovered/Not Resolved]
  - Foetal exposure during pregnancy [Not Recovered/Not Resolved]
  - Congenital tongue anomaly [Not Recovered/Not Resolved]
  - Micrognathia [Not Recovered/Not Resolved]
  - Choanal atresia [Not Recovered/Not Resolved]
  - Syndactyly [Not Recovered/Not Resolved]
  - Cleft palate [Not Recovered/Not Resolved]
  - Cleft lip [Not Recovered/Not Resolved]
  - Nasal septum deviation [Not Recovered/Not Resolved]
